FAERS Safety Report 8028120-3 (Version None)
Quarter: 2012Q1

REPORT INFORMATION
  Report Type: 
  Country: None (occurrence: None)
  Receive Date: 20120106
  Receipt Date: 20120103
  Transmission Date: 20120608
  Serious: Yes (Hospitalization)
  Sender: FDA-Public Use
  Company Number: FR-ROCHE-1027204

PATIENT
  Age: 18 Year
  Sex: Male

DRUGS (7)
  1. FLAGYL [Suspect]
     Indication: MENINGITIS
     Route: 042
     Dates: start: 20110802, end: 20110805
  2. PIPERACILLIN AND TAZOBACTAM [Suspect]
     Indication: MENINGITIS
     Dates: start: 20110731, end: 20110802
  3. ROCEPHIN [Suspect]
     Indication: MENINGITIS
     Dates: start: 20110731, end: 20110802
  4. DEPAKENE [Suspect]
     Indication: MENINGITIS
     Route: 042
     Dates: start: 20110802, end: 20110805
  5. LEVOTHYROXINE SODIUM [Concomitant]
  6. TOPIRAMATE [Concomitant]
  7. HYDROCORTISONE [Concomitant]

REACTIONS (1)
  - ENCEPHALOPATHY [None]
